FAERS Safety Report 22599455 (Version 3)
Quarter: 2023Q2

REPORT INFORMATION
  Report Type: Spontaneous
  Country: US (occurrence: US)
  Receive Date: 20230614
  Receipt Date: 20230627
  Transmission Date: 20230721
  Serious: No
  Sender: FDA-Public Use
  Company Number: US-PFIZER INC-202300216170

PATIENT
  Age: 4 Year
  Sex: Male
  Weight: 13.61 kg

DRUGS (1)
  1. GENOTROPIN [Suspect]
     Active Substance: SOMATROPIN
     Indication: Hormone level abnormal
     Dosage: 0.4 MG, DAILY
     Dates: start: 202304

REACTIONS (2)
  - Drug dose omission by device [Unknown]
  - Device breakage [Unknown]
